FAERS Safety Report 25208673 (Version 1)
Quarter: 2025Q2

REPORT INFORMATION
  Report Type: Spontaneous
  Country: FR (occurrence: FR)
  Receive Date: 20250417
  Receipt Date: 20250417
  Transmission Date: 20250716
  Serious: Yes (Other)
  Sender: FRESENIUS KABI
  Company Number: None

PATIENT
  Age: 79 Year
  Sex: Male
  Weight: 62 kg

DRUGS (10)
  1. LINEZOLID [Suspect]
     Active Substance: LINEZOLID
     Indication: Sepsis
     Dates: start: 20250311, end: 20250317
  2. FLUCONAZOLE [Suspect]
     Active Substance: FLUCONAZOLE
     Indication: Product used for unknown indication
     Route: 048
     Dates: start: 20250311, end: 202503
  3. RITUXIMAB [Suspect]
     Active Substance: RITUXIMAB
     Indication: Atypical haemolytic uraemic syndrome
     Route: 042
     Dates: start: 20250203, end: 20250203
  4. METFORMIN [Concomitant]
     Active Substance: METFORMIN HYDROCHLORIDE
     Indication: Product used for unknown indication
  5. LIPTRUZET [atorvastatin calcium trihydrate, EZETIMIBE] [Concomitant]
     Indication: Product used for unknown indication
  6. RAMIPRIL [Concomitant]
     Active Substance: RAMIPRIL
     Indication: Product used for unknown indication
  7. NATISPRAY [TRINITRINE SOLUTION, TRINITRINE (SOLUTION)] [Concomitant]
     Indication: Product used for unknown indication
  8. DELURSAN [URSODEOXYCHOLIC (ACID)] [Concomitant]
     Indication: Product used for unknown indication
  9. ASPIRIN [Concomitant]
     Active Substance: ASPIRIN
     Indication: Product used for unknown indication
  10. PERMIXON [FLORIDA PALM (LIPIDOSTEROLIC EXTRACT), SERENOA REPENS (LIPID [Concomitant]
     Indication: Product used for unknown indication

REACTIONS (1)
  - Agranulocytosis [Recovered/Resolved]

NARRATIVE: CASE EVENT DATE: 20250318
